FAERS Safety Report 4561762-6 (Version None)
Quarter: 2005Q1

REPORT INFORMATION
  Report Type: 
  Country: None (occurrence: None)
  Receive Date: 20050125
  Receipt Date: 20050112
  Transmission Date: 20050727
  Serious: Yes (Other)
  Sender: FDA-Public Use
  Company Number: 2005011735

PATIENT
  Age: 65 Year
  Sex: Female

DRUGS (13)
  1. BEXTRA [Suspect]
     Indication: ILL-DEFINED DISORDER
  2. LEVOTHYROXINE SODIUM [Concomitant]
  3. FUROSEMIDE (FUROSEMIDE) [Concomitant]
  4. ASPIRIN [Concomitant]
  5. PAROXETINE HCL [Concomitant]
  6. CETIRIZINE HCL [Concomitant]
  7. ALENDRONATE SODIUM [Concomitant]
  8. CALCIUM (CALCIUM) [Concomitant]
  9. METOPROLOL TARTRATE [Concomitant]
  10. FISH OIL (FISH OIL) [Concomitant]
  11. CYANOCOBALAMIN (CYANOCOBALAMIN) [Concomitant]
  12. FERROUS GLUCONATE (FERROUS GLUCONATE) [Concomitant]
  13. LISINOPRIL [Concomitant]

REACTIONS (2)
  - CEREBROVASCULAR ACCIDENT [None]
  - HAEMORRHAGE INTRACRANIAL [None]
